FAERS Safety Report 12408091 (Version 1)
Quarter: 2016Q2

REPORT INFORMATION
  Report Type: Report from Study
  Country: CO (occurrence: CO)
  Receive Date: 20160526
  Receipt Date: 20160526
  Transmission Date: 20160815
  Serious: Yes (Death)
  Sender: FDA-Public Use
  Company Number: CO-ABBVIE-16P-036-1637648-00

PATIENT
  Age: 79 Year
  Sex: Female
  Weight: 65 kg

DRUGS (1)
  1. ZEMPLAR [Suspect]
     Active Substance: PARICALCITOL
     Indication: HYPERPARATHYROIDISM SECONDARY
     Route: 048
     Dates: start: 20150922, end: 20160423

REACTIONS (2)
  - Cardio-respiratory arrest [Fatal]
  - Cardiac disorder [Fatal]

NARRATIVE: CASE EVENT DATE: 20160416
